FAERS Safety Report 10091904 (Version 1)
Quarter: 2014Q2

REPORT INFORMATION
  Report Type: Spontaneous
  Country: US (occurrence: US)
  Receive Date: 20140421
  Receipt Date: 20140421
  Transmission Date: 20141212
  Serious: Yes (Hospitalization, Other)
  Sender: FDA-Public Use
  Company Number: US-RB-066293-14

PATIENT
  Age: 26 Year
  Sex: Female

DRUGS (5)
  1. SUBOXONE FILM [Suspect]
     Dosage: SUBOXONE FILM
     Route: 060
  2. SUBOXONE FILM [Suspect]
     Indication: DRUG DEPENDENCE
     Dosage: SUBOXONE FILM; DOSING DETAILS UNKNOWN
     Route: 060
     Dates: start: 201404, end: 20140408
  3. REVIA [Suspect]
     Indication: DRUG DEPENDENCE
     Dosage: DOSING DETAILS UNKNOWN
     Route: 065
     Dates: start: 20140409, end: 20140409
  4. LORAZEPAM [Concomitant]
     Indication: PRODUCT USED FOR UNKNOWN INDICATION
     Dosage: TAKING DOSE OF 2 MG AT UNSPECIFIED FREQUENCY
     Route: 048
  5. PROZAC [Concomitant]
     Indication: DEPRESSION
     Dosage: FURTHER DOSING DETAILS UNKNOWN
     Route: 048

REACTIONS (2)
  - Drug withdrawal syndrome [Recovering/Resolving]
  - Convulsion [Recovered/Resolved]
